FAERS Safety Report 9286624 (Version 1)
Quarter: 2013Q2

REPORT INFORMATION
  Report Type: Spontaneous
  Country: FR (occurrence: FR)
  Receive Date: 20130513
  Receipt Date: 20130513
  Transmission Date: 20140414
  Serious: Yes (Other)
  Sender: FDA-Public Use
  Company Number: PHHY2013FR032849

PATIENT
  Age: 77 Year
  Sex: Male
  Weight: 63 kg

DRUGS (2)
  1. VINORELBINE [Suspect]
     Indication: LUNG CARCINOMA CELL TYPE UNSPECIFIED STAGE IV
     Dosage: 40 MG, DAILY
     Route: 042
     Dates: start: 20130307, end: 20130307
  2. METHYLPREDNISOLONE [Concomitant]
     Dosage: 80 MG
     Route: 042

REACTIONS (7)
  - Dermatitis bullous [Recovered/Resolved]
  - Injection site vesicles [Recovered/Resolved]
  - Injection site pruritus [Recovered/Resolved]
  - Product lot number issue [Unknown]
  - Injection site erythema [Recovered/Resolved]
  - Injection site pain [Recovered/Resolved]
  - Injection site reaction [Recovered/Resolved]
